APPROVED DRUG PRODUCT: POTASSIUM CHLORIDE
Active Ingredient: POTASSIUM CHLORIDE
Strength: 8MEQ
Dosage Form/Route: TABLET, EXTENDED RELEASE;ORAL
Application: A212987 | Product #001 | TE Code: AB2
Applicant: MACLEODS PHARMACEUTICALS LTD
Approved: Sep 6, 2024 | RLD: No | RS: No | Type: RX